FAERS Safety Report 7559108-4 (Version None)
Quarter: 2011Q2

REPORT INFORMATION
  Report Type: 
  Country: None (occurrence: None)
  Receive Date: 20110613
  Receipt Date: 20110607
  Transmission Date: 20111010
  Serious: Yes (Death, Life-Threatening, Hospitalization, Other)
  Sender: FDA-Public Use
  Company Number: 2010SP013614

PATIENT
  Age: 81 Year
  Sex: Male
  Weight: 110.9 kg

DRUGS (3)
  1. SCH 530348 [Suspect]
     Indication: ACUTE CORONARY SYNDROME
     Dosage: 40 MG;ONCE; PO; 2.5 MG; QD; PO
     Route: 048
     Dates: start: 20100223, end: 20100223
  2. SCH 530348 [Suspect]
     Indication: ACUTE CORONARY SYNDROME
     Dosage: 40 MG;ONCE; PO; 2.5 MG; QD; PO
     Route: 048
     Dates: start: 20100222, end: 20100222
  3. EPTIFIBATIDE [Suspect]
     Dosage: 20 ML; IV
     Route: 042
     Dates: start: 20100219, end: 20100222

REACTIONS (19)
  - CARDIOGENIC SHOCK [None]
  - PULMONARY CONGESTION [None]
  - RESPIRATORY FAILURE [None]
  - THROMBOCYTOPENIA [None]
  - EPISTAXIS [None]
  - PULMONARY ALVEOLAR HAEMORRHAGE [None]
  - RENAL FAILURE ACUTE [None]
  - HAEMOPTYSIS [None]
  - ANAEMIA [None]
  - CARDIAC ENZYMES INCREASED [None]
  - LEUKOCYTOSIS [None]
  - CARDIAC FAILURE [None]
  - DIALYSIS [None]
  - MITRAL VALVE INCOMPETENCE [None]
  - ARRHYTHMIA SUPRAVENTRICULAR [None]
  - HYPOTENSION [None]
  - MULTI-ORGAN FAILURE [None]
  - CHEST PAIN [None]
  - PULMONARY OEDEMA [None]
